FAERS Safety Report 18885378 (Version 1)
Quarter: 2021Q1

REPORT INFORMATION
  Report Type: Spontaneous
  Country: US (occurrence: US)
  Receive Date: 20210212
  Receipt Date: 20210212
  Transmission Date: 20210420
  Serious: No
  Sender: FDA-Public Use
  Company Number: None

PATIENT
  Age: 60 Year
  Sex: Female
  Weight: 67.5 kg

DRUGS (1)
  1. ESTRADIOL WEEKLY PATCHES .375 [Suspect]
     Active Substance: ESTRADIOL
     Indication: HOT FLUSH
     Dosage: ?          QUANTITY:1 PATCH(ES);OTHER FREQUENCY:WEEKLY;?
     Route: 061
     Dates: start: 20200202, end: 20200909

REACTIONS (5)
  - Drug delivery system issue [None]
  - Product adhesion issue [None]
  - Product substitution issue [None]
  - Product design issue [None]
  - Device ineffective [None]

NARRATIVE: CASE EVENT DATE: 20200808
